FAERS Safety Report 8201929-9 (Version None)
Quarter: 2012Q1

REPORT INFORMATION
  Report Type: 
  Country: None (occurrence: None)
  Receive Date: 20120308
  Receipt Date: 20120222
  Transmission Date: 20120608
  Serious: Yes (Death, Other)
  Sender: FDA-Public Use
  Company Number: 2012MA002525

PATIENT
  Age: 54 Year
  Sex: Male

DRUGS (4)
  1. ACETAMINOPHEN WITH PROPOXYPHENE HCL TAB [Concomitant]
  2. ACETAMINOPHEN AND CODEINE PHOSPHATE [Suspect]
  3. TEGRETOL [Concomitant]
  4. MELOXICAM [Concomitant]

REACTIONS (8)
  - HYPERSENSITIVITY [None]
  - INJURY [None]
  - DYSPNOEA [None]
  - MALAISE [None]
  - POISONING [None]
  - LOSS OF CONSCIOUSNESS [None]
  - CEREBRAL HAEMORRHAGE [None]
  - SHOCK [None]
